FAERS Safety Report 7611498-X (Version None)
Quarter: 2011Q3

REPORT INFORMATION
  Report Type: 
  Country: None (occurrence: None)
  Receive Date: 20110715
  Receipt Date: 20110630
  Transmission Date: 20111222
  Serious: Yes (Death)
  Sender: FDA-Public Use
  Company Number: GB-GENENTECH-317209

PATIENT
  Sex: Female

DRUGS (1)
  1. LUCENTIS [Suspect]
     Indication: PRODUCT USED FOR UNKNOWN INDICATION
     Dosage: UNK UNK, UNK

REACTIONS (2)
  - AORTIC ANEURYSM RUPTURE [None]
  - OVARIAN NEOPLASM [None]
